FAERS Safety Report 25578702 (Version 4)
Quarter: 2025Q3

REPORT INFORMATION
  Report Type: Spontaneous
  Country: CA (occurrence: CA)
  Receive Date: 20250718
  Receipt Date: 20250826
  Transmission Date: 20251020
  Serious: Yes (Hospitalization, Other)
  Sender: ABBVIE
  Company Number: CA-ABBVIE-6373633

PATIENT
  Age: 70 Year
  Sex: Male

DRUGS (10)
  1. GLECAPREVIR\PIBRENTASVIR [Suspect]
     Active Substance: GLECAPREVIR\PIBRENTASVIR
     Indication: Product used for unknown indication
     Dosage: 3 TABLETS DID NOT ABATE EVEN 5 WEEKS AFTER MAV STOPPED AND NOT UNTIL PO STEROIDS TAKEN.
     Route: 048
     Dates: start: 20250329, end: 20250421
  2. ROSUVASTATIN [Concomitant]
     Active Substance: ROSUVASTATIN
     Indication: Dyslipidaemia
     Dosage: 10
     Dates: start: 20240329, end: 20250421
  3. ZAROXOLYN [Concomitant]
     Active Substance: METOLAZONE
     Indication: Oedema
     Dosage: 2.5
     Route: 048
  4. LASIX [Concomitant]
     Active Substance: FUROSEMIDE
     Indication: Oedema
     Dosage: 40  DRUG START DATE BEFORE 2024
     Route: 050
     Dates: end: 202505
  5. HYDRALAZINE [Concomitant]
     Active Substance: HYDRALAZINE HYDROCHLORIDE
     Indication: Hypertension
     Dosage: 50  BEFORE 2024
     Route: 050
  6. PLAVIX [Concomitant]
     Active Substance: CLOPIDOGREL BISULFATE
     Indication: Coronary artery disease
     Dosage: 75  DRUG START DATE BEFORE 2024
  7. PANTOPRAZOLE SODIUM [Concomitant]
     Active Substance: PANTOPRAZOLE SODIUM
     Indication: Gastrooesophageal reflux disease
     Dosage: 40 DRUG START DATE BEFORE 2024
     Route: 050
  8. METOPROLOL [Concomitant]
     Active Substance: METOPROLOL
     Indication: Coronary artery disease
     Dosage: 25  DRUG START DATE BEFORE 2024
     Route: 050
  9. ISOSORBIDE DINITRATE [Concomitant]
     Active Substance: ISOSORBIDE DINITRATE
     Indication: Cardiac failure congestive
     Dosage: 30  DRUG START DATE BEFORE 2024
     Route: 050
  10. PREDNISONE [Concomitant]
     Active Substance: PREDNISONE
     Indication: Product used for unknown indication
     Dates: start: 20250529

REACTIONS (9)
  - Cardiac failure chronic [Unknown]
  - Drug reaction with eosinophilia and systemic symptoms [Not Recovered/Not Resolved]
  - Renal failure [Not Recovered/Not Resolved]
  - Rash [Not Recovered/Not Resolved]
  - Eosinophilia [Recovering/Resolving]
  - Erythema [Recovering/Resolving]
  - Exfoliative rash [Recovering/Resolving]
  - End stage renal disease [Unknown]
  - Huntington^s disease [Unknown]

NARRATIVE: CASE EVENT DATE: 20250421
